FAERS Safety Report 6594806-0 (Version None)
Quarter: 2010Q1

REPORT INFORMATION
  Report Type: 
  Country: None (occurrence: None)
  Receive Date: 20100222
  Receipt Date: 20100212
  Transmission Date: 20100710
  Serious: Yes (Other)
  Sender: FDA-Public Use
  Company Number: US-PFIZER INC-2007096660

PATIENT
  Sex: Male
  Weight: 77 kg

DRUGS (12)
  1. CHANTIX [Suspect]
     Indication: SMOKING CESSATION THERAPY
     Dosage: UNK
     Dates: start: 20071001
  2. CHANTIX [Suspect]
     Dosage: 1 MG, 1X/DAY
     Route: 048
     Dates: start: 20100206
  3. GABAPENTIN [Concomitant]
  4. TEGRETOL [Concomitant]
  5. LORAZEPAM [Concomitant]
  6. ZOLOFT [Concomitant]
  7. TENOFOVIR DISOPROXIL FUMARATE [Concomitant]
  8. SUSTIVA [Concomitant]
  9. EPZICOM [Concomitant]
  10. METFORMIN HYDROCHLORIDE [Concomitant]
  11. GEMFIBROZIL [Concomitant]
  12. METOCLOPRAMIDE [Concomitant]

REACTIONS (5)
  - DIARRHOEA [None]
  - FLATULENCE [None]
  - LOWER RESPIRATORY TRACT INFECTION [None]
  - TOOTHACHE [None]
  - WEIGHT INCREASED [None]
